FAERS Safety Report 12793795 (Version 1)
Quarter: 2016Q3

REPORT INFORMATION
  Report Type: Spontaneous
  Country: US (occurrence: US)
  Receive Date: 20160929
  Receipt Date: 20160929
  Transmission Date: 20161109
  Serious: No
  Sender: FDA-Public Use
  Company Number: US-JAZZ-2016-US-011868

PATIENT
  Sex: Female

DRUGS (18)
  1. TRAMADOL HCL [Concomitant]
     Active Substance: TRAMADOL HYDROCHLORIDE
  2. COLACE [Concomitant]
     Active Substance: DOCUSATE SODIUM
  3. GABAPENTIN. [Concomitant]
     Active Substance: GABAPENTIN
  4. XANAX XR [Concomitant]
     Active Substance: ALPRAZOLAM
  5. DULOXETINE HCL [Concomitant]
     Active Substance: DULOXETINE HYDROCHLORIDE
  6. XYREM [Suspect]
     Active Substance: SODIUM OXYBATE
     Indication: CATAPLEXY
  7. PANTOPRAZOLE SODIUM. [Concomitant]
     Active Substance: PANTOPRAZOLE SODIUM
  8. TEMAZEPAM. [Concomitant]
     Active Substance: TEMAZEPAM
  9. FLEXERIL [Concomitant]
     Active Substance: CYCLOBENZAPRINE HYDROCHLORIDE
  10. XARELTO [Concomitant]
     Active Substance: RIVAROXABAN
  11. NATURE-THROID [Concomitant]
     Active Substance: THYROID, PORCINE
  12. NUVIGIL [Concomitant]
     Active Substance: ARMODAFINIL
  13. VITAMIN D3 [Concomitant]
     Active Substance: CHOLECALCIFEROL
  14. FENOFIBRATE. [Concomitant]
     Active Substance: FENOFIBRATE
  15. METHYLPHENIDATE. [Concomitant]
     Active Substance: METHYLPHENIDATE
  16. XYREM [Suspect]
     Active Substance: SODIUM OXYBATE
     Indication: NARCOLEPSY
     Dosage: 3 G, BID
     Route: 048
     Dates: start: 201512
  17. MULTIVITAMINS [Concomitant]
     Active Substance: VITAMINS
  18. SPIRONOLACTONE. [Concomitant]
     Active Substance: SPIRONOLACTONE

REACTIONS (1)
  - Headache [Unknown]
